FAERS Safety Report 7933910-9 (Version None)
Quarter: 2011Q4

REPORT INFORMATION
  Report Type: 
  Country: None (occurrence: None)
  Receive Date: 20111122
  Receipt Date: 20111113
  Transmission Date: 20120403
  Serious: Yes (Disabling, Other)
  Sender: FDA-Public Use
  Company Number: US-US-EMD SERONO, INC.-7095717

PATIENT
  Sex: Male

DRUGS (1)
  1. REBIF [Suspect]
     Indication: MULTIPLE SCLEROSIS
     Route: 058
     Dates: start: 20110729

REACTIONS (8)
  - DECREASED APPETITE [None]
  - INTENTIONAL DRUG MISUSE [None]
  - FUNCTIONAL GASTROINTESTINAL DISORDER [None]
  - INSOMNIA [None]
  - PAIN [None]
  - ANURIA [None]
  - BEDRIDDEN [None]
  - EYE HAEMORRHAGE [None]
